FAERS Safety Report 6501558-9 (Version None)
Quarter: 2009Q4

REPORT INFORMATION
  Report Type: 
  Country: None (occurrence: None)
  Receive Date: 20091216
  Receipt Date: 20091212
  Transmission Date: 20100525
  Serious: Yes (Hospitalization)
  Sender: FDA-Public Use
  Company Number: D0064913A

PATIENT
  Sex: Female
  Weight: 68 kg

DRUGS (4)
  1. ZOFRAN [Suspect]
     Route: 048
     Dates: start: 20091129, end: 20091129
  2. PARACETAMOL [Suspect]
     Dosage: 500MG SEE DOSAGE TEXT
     Route: 048
     Dates: start: 20091129, end: 20091129
  3. AMITRIPTYLINE HYDROCHLORIDE [Suspect]
     Dosage: 50MG SEE DOSAGE TEXT
     Route: 048
     Dates: start: 20091129, end: 20091129
  4. WHISKY [Suspect]
     Dosage: 1BT SEE DOSAGE TEXT
     Route: 048
     Dates: start: 20091129, end: 20091129

REACTIONS (5)
  - COMA [None]
  - INTENTIONAL OVERDOSE [None]
  - LOSS OF CONSCIOUSNESS [None]
  - SUICIDE ATTEMPT [None]
  - VOMITING [None]
